FAERS Safety Report 16736881 (Version 3)
Quarter: 2019Q3

REPORT INFORMATION
  Report Type: Spontaneous
  Country: JP (occurrence: JP)
  Receive Date: 20190823
  Receipt Date: 20190904
  Transmission Date: 20191005
  Serious: No
  Sender: FDA-Public Use
  Company Number: JP-ASTRAZENECA-2019SF14900

PATIENT
  Age: 80 Year
  Sex: Male

DRUGS (1)
  1. IMFINZI [Suspect]
     Active Substance: DURVALUMAB
     Indication: NON-SMALL CELL LUNG CANCER
     Route: 041
     Dates: start: 20190719, end: 20190719

REACTIONS (1)
  - Radiation pneumonitis [Not Recovered/Not Resolved]

NARRATIVE: CASE EVENT DATE: 20190729
